FAERS Safety Report 8041283-9 (Version None)
Quarter: 2012Q1

REPORT INFORMATION
  Report Type: 
  Country: None (occurrence: None)
  Receive Date: 20120112
  Receipt Date: 20120109
  Transmission Date: 20120608
  Serious: Yes (Other)
  Sender: FDA-Public Use
  Company Number: US-PFIZER INC-2011040641

PATIENT
  Sex: Male

DRUGS (1)
  1. CHANTIX [Suspect]
     Indication: SMOKING CESSATION THERAPY
     Dosage: STARTER PACK
     Dates: start: 20071201, end: 20080310

REACTIONS (5)
  - SUICIDAL IDEATION [None]
  - AGGRESSION [None]
  - MOOD ALTERED [None]
  - DEPRESSION [None]
  - ANXIETY [None]
